FAERS Safety Report 6893311-1 (Version None)
Quarter: 2010Q3

REPORT INFORMATION
  Report Type: 
  Country: None (occurrence: None)
  Receive Date: 20100731
  Receipt Date: 20090818
  Transmission Date: 20110219
  Serious: No
  Sender: FDA-Public Use
  Company Number: US-PFIZER INC-2009224031

PATIENT
  Sex: Female
  Weight: 78.005 kg

DRUGS (9)
  1. GABAPENTIN [Suspect]
     Indication: NEURALGIA
     Dosage: 200 MG, UNK
     Dates: start: 20090501
  2. ATACAND [Concomitant]
     Dosage: UNK
  3. NORVASC [Concomitant]
     Dosage: UNK
  4. LEVOTHYROXINE [Concomitant]
     Dosage: UNK
  5. PREVACID [Concomitant]
     Dosage: UNK
  6. PANCRELIPASE [Concomitant]
     Dosage: UNK
  7. DARIFENACIN [Concomitant]
     Dosage: UNK
  8. LEXAPRO [Concomitant]
     Dosage: UNK
  9. LORAZEPAM [Concomitant]
     Dosage: UNK

REACTIONS (2)
  - ALOPECIA [None]
  - TRICHORRHEXIS [None]
